FAERS Safety Report 8777912 (Version 1)
Quarter: 2012Q4

REPORT INFORMATION
  Report Type: 
  Country: US (occurrence: US)
  Receive Date: 20120911
  Receipt Date: 20120911
  Transmission Date: 20130627
  Serious: Yes (Death)
  Sender: FDA-Public Use
  Company Number: US-ASTELLAS-2012US007683

PATIENT
  Age: 77 Year
  Sex: Male

DRUGS (2)
  1. PROGRAF [Suspect]
     Indication: RENAL TRANSPLANT
     Dosage: 0.5 mg, bid
     Route: 048
     Dates: end: 20120831
  2. MYCOPHENOLATE [Concomitant]
     Indication: RENAL TRANSPLANT
     Dosage: 500 mg, Unknown/D
     Route: 065
     Dates: start: 20110826, end: 20120831

REACTIONS (1)
  - Death [Fatal]
